FAERS Safety Report 6999579-5 (Version None)
Quarter: 2010Q3

REPORT INFORMATION
  Report Type: 
  Country: None (occurrence: None)
  Receive Date: 20100920
  Receipt Date: 20071115
  Transmission Date: 20110219
  Serious: Yes (Hospitalization, Other)
  Sender: FDA-Public Use
  Company Number: US-ASTRAZENECA-2006UW10714

PATIENT
  Age: 12271 Day
  Sex: Female
  Weight: 52.2 kg

DRUGS (13)
  1. SEROQUEL [Suspect]
     Indication: BIPOLAR DISORDER
     Route: 048
     Dates: start: 20030201, end: 20030401
  2. SEROQUEL [Suspect]
     Dosage: 1 - 3 AT NIGHT
     Route: 048
     Dates: start: 20030203
  3. ZYPREXA [Concomitant]
  4. RISPERDAL [Concomitant]
  5. TEGRETOL [Concomitant]
     Indication: PETIT MAL EPILEPSY
     Dosage: 250 - 1200 MG DAILY
     Route: 048
     Dates: start: 20010118
  6. DILANTIN [Concomitant]
     Dates: start: 20001228
  7. XANAX [Concomitant]
     Dates: start: 20040611
  8. ZOCOR [Concomitant]
     Route: 048
     Dates: start: 20060515
  9. NICOTINE [Concomitant]
     Route: 023
     Dates: start: 20001228
  10. VALIUM [Concomitant]
     Dosage: 15 - 37.5 MG DAILY
     Route: 048
     Dates: start: 20010927
  11. PHENOBARBITAL [Concomitant]
     Dates: start: 20010927
  12. ZOLOFT [Concomitant]
     Dates: start: 20010927
  13. SONATA [Concomitant]
     Indication: SLEEP DISORDER
     Dates: start: 20040810

REACTIONS (4)
  - DIABETES MELLITUS [None]
  - DIABETIC KETOACIDOSIS [None]
  - TYPE 1 DIABETES MELLITUS [None]
  - WEIGHT INCREASED [None]
